FAERS Safety Report 22015152 (Version 1)
Quarter: 2023Q1

REPORT INFORMATION
  Report Type: Spontaneous
  Country: US (occurrence: US)
  Receive Date: 20230221
  Receipt Date: 20230221
  Transmission Date: 20230417
  Serious: Yes (Hospitalization, Other)
  Sender: FDA-Public Use
  Company Number: US-002147023-NVSC2023US035559

PATIENT
  Sex: Male

DRUGS (4)
  1. ENOXAPARIN [Suspect]
     Active Substance: ENOXAPARIN
     Indication: Foetal exposure during pregnancy
     Dosage: MATERNAL EXPOSURE DURING PREGNANCY: UNKNOWN
     Route: 064
  2. DEXAMETHASONE [Suspect]
     Active Substance: DEXAMETHASONE
     Indication: Foetal exposure during pregnancy
     Dosage: MATERNAL EXPOSURE DURING PREGNANCY: UNKNOWN
     Route: 064
  3. CHLOROQUINE [Suspect]
     Active Substance: CHLOROQUINE
     Indication: Foetal exposure during pregnancy
     Dosage: MATERNAL EXPOSURE DURING PREGNANCY: UNKNOWN
     Route: 064
  4. ASPIRIN [Suspect]
     Active Substance: ASPIRIN
     Indication: Foetal exposure during pregnancy
     Dosage: MATERNAL EXPOSURE DURING PREGNANCY: UNKNOWN
     Route: 064

REACTIONS (5)
  - Premature baby [Unknown]
  - Neonatal hypotension [Recovering/Resolving]
  - Neonatal respiratory distress syndrome [Recovering/Resolving]
  - Foetal heart rate deceleration abnormality [Recovering/Resolving]
  - Foetal exposure during pregnancy [Unknown]
